FAERS Safety Report 6274413-X (Version None)
Quarter: 2009Q3

REPORT INFORMATION
  Report Type: 
  Country: None (occurrence: None)
  Receive Date: 20090720
  Receipt Date: 20090709
  Transmission Date: 20100115
  Serious: Yes (Death)
  Sender: FDA-Public Use
  Company Number: US-SANOFI-SYNTHELABO-A03200700605

PATIENT
  Sex: Male

DRUGS (2)
  1. ELIGARD [Suspect]
     Indication: DRUG USE FOR UNKNOWN INDICATION
     Dosage: 45 MG EVERY 6 MONTHS
     Route: 058
  2. BLOOD THINNERS [Concomitant]
     Indication: DRUG USE FOR UNKNOWN INDICATION
     Dosage: UNK
     Route: 065

REACTIONS (4)
  - DEATH [None]
  - HAEMORRHAGE [None]
  - INJECTION SITE HAEMORRHAGE [None]
  - INJECTION SITE PAIN [None]
